FAERS Safety Report 11144868 (Version 1)
Quarter: 2015Q2

REPORT INFORMATION
  Report Type: Spontaneous
  Country: US (occurrence: US)
  Receive Date: 20150528
  Receipt Date: 20150528
  Transmission Date: 20150821
  Serious: No
  Sender: FDA-Public Use
  Company Number: US-BIOGENIDEC-2015BI070731

PATIENT
  Age: 68 Year
  Sex: Female

DRUGS (10)
  1. BREATHE RIGHT [Concomitant]
  2. AVONEX [Suspect]
     Active Substance: INTERFERON BETA-1A
     Indication: MULTIPLE SCLEROSIS
     Route: 030
     Dates: start: 20120223
  3. IRON [Concomitant]
     Active Substance: IRON
  4. VITAMIN D3 [Concomitant]
     Active Substance: CHOLECALCIFEROL
  5. SALINE MIST SPRAY [Concomitant]
  6. VITAMIN B12 [Concomitant]
     Active Substance: CYANOCOBALAMIN
  7. VICKS SINEX [Concomitant]
     Active Substance: PHENYLEPHRINE HYDROCHLORIDE
  8. PREVIDENT 5000 SENSITIVE [Concomitant]
     Active Substance: POTASSIUM NITRATE\SODIUM FLUORIDE
  9. OCUVITE [Concomitant]
     Active Substance: VITAMINS
  10. FISH OIL [Concomitant]
     Active Substance: FISH OIL

REACTIONS (1)
  - Dementia Alzheimer^s type [Unknown]
